FAERS Safety Report 21759456 (Version 2)
Quarter: 2023Q1

REPORT INFORMATION
  Report Type: Spontaneous
  Country: ES (occurrence: ES)
  Receive Date: 20221221
  Receipt Date: 20230307
  Transmission Date: 20230417
  Serious: Yes (Other)
  Sender: FDA-Public Use
  Company Number: ES-UCBSA-2022056706

PATIENT
  Age: 27 Year
  Sex: Female

DRUGS (8)
  1. LAMOTRIGINE [Suspect]
     Active Substance: LAMOTRIGINE
     Indication: Product used for unknown indication
     Dosage: 100 MILLIGRAM (2-1-1-1)
     Route: 065
  2. LAMOTRIGINE [Suspect]
     Active Substance: LAMOTRIGINE
     Dosage: 300 MILLIGRAM, ONCE A DAY (100 MILLIGRAM, 3X/DAY (TID)
     Route: 065
  3. LAMOTRIGINE [Suspect]
     Active Substance: LAMOTRIGINE
     Dosage: UNK (DOSE ADJUSTMENT )
     Route: 065
  4. BRIVIACT [Suspect]
     Active Substance: BRIVARACETAM
     Indication: Product used for unknown indication
     Dosage: 150 MILLIGRAM, ONCE A DAY
     Route: 048
  5. BRIVIACT [Suspect]
     Active Substance: BRIVARACETAM
     Dosage: UNK (DOSE ADJUSTMENT )
     Route: 065
  6. BRIVIACT [Suspect]
     Active Substance: BRIVARACETAM
     Dosage: 200 MILLIGRAM, ONCE A DAY (100 MILLIGRAM, 2X/DAY (BID)
     Route: 048
  7. BRIVIACT [Suspect]
     Active Substance: BRIVARACETAM
     Dosage: 50 MILLIGRAM, ONCE A DAY
     Route: 048
     Dates: start: 20220322, end: 2022
  8. BRIVIACT [Suspect]
     Active Substance: BRIVARACETAM
     Dosage: 100 MILLIGRAM, ONCE A DAY (50 MILLIGRAM, 2X/DAY (BID)
     Route: 048
     Dates: start: 20220323

REACTIONS (3)
  - Generalised tonic-clonic seizure [Recovered/Resolved]
  - Maternal exposure during pregnancy [Unknown]
  - Maternal exposure before pregnancy [Unknown]

NARRATIVE: CASE EVENT DATE: 20220301
